FAERS Safety Report 6072856-0 (Version None)
Quarter: 2009Q1

REPORT INFORMATION
  Report Type: 
  Country: None (occurrence: None)
  Receive Date: 20090205
  Receipt Date: 20090120
  Transmission Date: 20090719
  Serious: Yes (Disabling)
  Sender: FDA-Public Use
  Company Number: 2009S1001163

PATIENT
  Age: 56 Year
  Weight: 127 kg

DRUGS (2)
  1. CITALOPRAM HYDROBROMIDE [Suspect]
     Indication: DEPRESSION
     Dosage: 40 MG; ORAL
     Route: 048
     Dates: start: 20081208, end: 20081224
  2. LITHIUM CARBONATE [Suspect]
     Indication: BIPOLAR I DISORDER
     Dosage: 1 G;DAILY; ORAL
     Route: 048

REACTIONS (3)
  - DRUG INTERACTION [None]
  - SLUGGISHNESS [None]
  - TREMOR [None]
